FAERS Safety Report 18221340 (Version 1)
Quarter: 2020Q3

REPORT INFORMATION
  Report Type: Spontaneous
  Country: US (occurrence: US)
  Receive Date: 20200901
  Receipt Date: 20200901
  Transmission Date: 20201103
  Serious: No
  Sender: FDA-Public Use
  Company Number: None

PATIENT
  Age: 79 Year
  Sex: Female

DRUGS (1)
  1. AMBRISENTAN 10MG TABLETS 30/BO: 10MG [Suspect]
     Active Substance: AMBRISENTAN
     Indication: HEART DISEASE CONGENITAL
     Route: 048
     Dates: start: 20191220, end: 20200623

REACTIONS (12)
  - Bradycardia [None]
  - Cardiogenic shock [None]
  - Asthenia [None]
  - Pulmonary embolism [None]
  - Right ventricular failure [None]
  - Portopulmonary hypertension [None]
  - Atrial fibrillation [None]
  - Chest discomfort [None]
  - Troponin increased [None]
  - Tachycardia [None]
  - Blood pressure systolic decreased [None]
  - Pulse absent [None]

NARRATIVE: CASE EVENT DATE: 20200829
